FAERS Safety Report 7183304-1 (Version None)
Quarter: 2010Q4

REPORT INFORMATION
  Report Type: 
  Country: None (occurrence: None)
  Receive Date: 20101222
  Receipt Date: 20100809
  Transmission Date: 20110411
  Serious: No
  Sender: FDA-Public Use
  Company Number: A0874609A

PATIENT
  Sex: Female

DRUGS (2)
  1. FLONASE [Suspect]
     Dosage: 1SPR PER DAY
     Route: 045
     Dates: start: 20100601
  2. ANTIBIOTIC [Concomitant]

REACTIONS (2)
  - COUGH [None]
  - VISUAL IMPAIRMENT [None]
